FAERS Safety Report 13840658 (Version 2)
Quarter: 2017Q3

REPORT INFORMATION
  Report Type: Spontaneous
  Country: US (occurrence: US)
  Receive Date: 20170807
  Receipt Date: 20170824
  Transmission Date: 20171127
  Serious: Yes (Hospitalization, Other)
  Sender: FDA-Public Use
  Company Number: US-PFIZER INC-2016231800

PATIENT
  Age: 12 Month
  Sex: Female
  Weight: 8 kg

DRUGS (5)
  1. BUPIVACAINE HCL [Suspect]
     Active Substance: BUPIVACAINE HYDROCHLORIDE
     Indication: GENERAL ANAESTHESIA
     Dosage: 0.31 MG/KG, UNK (BOLUSED WITH 2 ML OF 0.125%)
     Route: 008
  2. FENTANYL. [Concomitant]
     Active Substance: FENTANYL
     Indication: GENERAL ANAESTHESIA
     Dosage: 0.6 UG/KG/H, UNK (INFUSION OF 0.125% BUPIVACAINE WITH 2 UG/ML FENTANYL AT A RATE OF 2.5 ML/H)
     Route: 008
  3. DEXMEDETOMIDINE. [Concomitant]
     Active Substance: DEXMEDETOMIDINE
     Indication: SEDATIVE THERAPY
     Dosage: UNK
  4. BUPIVACAINE HCL [Suspect]
     Active Substance: BUPIVACAINE HYDROCHLORIDE
     Dosage: 0.125% 0.39 MG/KG/H (INFUSION OF 0.125% BUPIVACAINE WITH 2 UG/ML FENTANYL AT A RATE OF 2.5 ML/H)
     Route: 008
  5. MORPHINE [Concomitant]
     Active Substance: MORPHINE
     Indication: SEDATIVE THERAPY
     Dosage: UNK

REACTIONS (2)
  - Toxicity to various agents [Recovered/Resolved]
  - Seizure [Recovered/Resolved]
